FAERS Safety Report 16864366 (Version 2)
Quarter: 2019Q4

REPORT INFORMATION
  Report Type: Report from Study
  Country: None (occurrence: US)
  Receive Date: 20190928
  Receipt Date: 20191003
  Transmission Date: 20200122
  Serious: Yes (Hospitalization, Other)
  Sender: FDA-Public Use
  Company Number: US-ABBVIE-19K-163-2920172-00

PATIENT
  Age: 61 Year
  Sex: Male

DRUGS (2)
  1. HUMIRA [Suspect]
     Active Substance: ADALIMUMAB
     Indication: CROHN^S DISEASE
     Route: 058
     Dates: start: 201909
  2. HUMIRA [Suspect]
     Active Substance: ADALIMUMAB
     Indication: SENILE OSTEOPOROSIS
     Route: 058
     Dates: end: 201908

REACTIONS (5)
  - Procedural complication [Recovering/Resolving]
  - Arteriosclerosis coronary artery [Recovered/Resolved]
  - Aortic arteriosclerosis [Recovered/Resolved]
  - Rib fracture [Recovering/Resolving]
  - Atrial fibrillation [Not Recovered/Not Resolved]

NARRATIVE: CASE EVENT DATE: 201906
